FAERS Safety Report 13238112 (Version 4)
Quarter: 2017Q2

REPORT INFORMATION
  Report Type: Spontaneous
  Country: US (occurrence: US)
  Receive Date: 20170216
  Receipt Date: 20170511
  Transmission Date: 20170830
  Serious: No
  Sender: FDA-Public Use
  Company Number: US-HORIZON-RAV-0046-2017

PATIENT
  Age: 2 Year
  Sex: Male

DRUGS (4)
  1. ANAMIX JR [Concomitant]
     Indication: UREA CYCLE ENZYME DEFICIENCY
  2. PROTEIN [Concomitant]
     Active Substance: PROTEIN
  3. RAVICTI [Suspect]
     Active Substance: GLYCEROL PHENYLBUTYRATE
     Indication: ARGININOSUCCINATE SYNTHETASE DEFICIENCY
     Dosage: 0.5 ML TID, DAILY 1.5 ML
     Dates: start: 201608
  4. PRO-PHREE [Concomitant]
     Indication: UREA CYCLE ENZYME DEFICIENCY

REACTIONS (2)
  - Amino acid level increased [Recovered/Resolved]
  - Weight gain poor [Unknown]

NARRATIVE: CASE EVENT DATE: 2016
